FAERS Safety Report 6208971-8 (Version None)
Quarter: 2009Q2

REPORT INFORMATION
  Report Type: 
  Country: None (occurrence: None)
  Receive Date: 20090522
  Receipt Date: 20090206
  Transmission Date: 20091009
  Serious: No
  Sender: FDA-Public Use
  Company Number: 8042618

PATIENT
  Sex: Male

DRUGS (1)
  1. CIMZIA [Suspect]

REACTIONS (6)
  - COUGH [None]
  - MALAISE [None]
  - NASAL CONGESTION [None]
  - OROPHARYNGEAL PAIN [None]
  - PYREXIA [None]
  - SINUS HEADACHE [None]
